FAERS Safety Report 17209107 (Version 3)
Quarter: 2020Q1

REPORT INFORMATION
  Report Type: Spontaneous
  Country: US (occurrence: US)
  Receive Date: 20191227
  Receipt Date: 20200311
  Transmission Date: 20200409
  Serious: No
  Sender: FDA-Public Use
  Company Number: US-009507513-1912USA003602

PATIENT
  Age: 22 Year
  Sex: Female

DRUGS (1)
  1. NEXPLANON [Suspect]
     Active Substance: ETONOGESTREL
     Dosage: 1 ROD EVERY 3 YEARS; INSERTED ABOUT 4 YEARS AGO, LEFT ARM
     Dates: start: 20171114

REACTIONS (4)
  - Incorrect product administration duration [Unknown]
  - Urinary tract infection [Unknown]
  - Device deployment issue [Unknown]
  - Implant site pain [Unknown]

NARRATIVE: CASE EVENT DATE: 2018
